FAERS Safety Report 9812285 (Version 1)
Quarter: 2014Q1

REPORT INFORMATION
  Report Type: Spontaneous
  Country: US (occurrence: US)
  Receive Date: 20140113
  Receipt Date: 20140113
  Transmission Date: 20141002
  Serious: Yes (Death, Hospitalization)
  Sender: FDA-Public Use
  Company Number: US-PFIZER INC-2014004871

PATIENT
  Age: 47 Year
  Sex: Male

DRUGS (3)
  1. OXYCODONE HYDROCHLORIDE [Suspect]
     Dosage: UNK
  2. ACETAMINOPHEN [Suspect]
  3. OXYCODONE/PARACETAMOL [Suspect]

REACTIONS (2)
  - Cardiac arrest [Fatal]
  - Respiratory arrest [Fatal]
